FAERS Safety Report 5615646-2 (Version None)
Quarter: 2008Q1

REPORT INFORMATION
  Report Type: 
  Country: None (occurrence: None)
  Receive Date: 20080206
  Receipt Date: 20080131
  Transmission Date: 20080703
  Serious: Yes (Hospitalization)
  Sender: FDA-Public Use
  Company Number: B0506736A

PATIENT
  Age: 67 Year
  Sex: Male

DRUGS (6)
  1. AVANDAMET [Suspect]
     Route: 065
     Dates: start: 20060101
  2. SIMVASTATIN [Concomitant]
  3. ENALAPRIL MALEATE [Concomitant]
  4. NORVASC [Concomitant]
  5. NOVONORM [Concomitant]
  6. ASPIRIN [Concomitant]

REACTIONS (4)
  - CEREBRAL HAEMORRHAGE [None]
  - FALL [None]
  - LOSS OF CONSCIOUSNESS [None]
  - NAUSEA [None]
